FAERS Safety Report 17151749 (Version 1)
Quarter: 2019Q4

REPORT INFORMATION
  Report Type: Spontaneous
  Country: SE (occurrence: SE)
  Receive Date: 20191213
  Receipt Date: 20191213
  Transmission Date: 20200122
  Serious: Yes (Hospitalization)
  Sender: FDA-Public Use
  Company Number: SE-PFIZER INC-2019534659

PATIENT
  Age: 19 Year
  Sex: Male

DRUGS (4)
  1. THERALEN [Suspect]
     Active Substance: TRIMEPRAZINE
     Dosage: ^A LITTLE^
     Route: 048
     Dates: start: 20180520, end: 20180520
  2. PROPAVAN [Suspect]
     Active Substance: PROPIOMAZINE
     Dosage: 20 DF
     Route: 048
     Dates: start: 20180520, end: 20180520
  3. LERGIGAN [PROMETHAZINE HYDROCHLORIDE] [Suspect]
     Active Substance: PROMETHAZINE HYDROCHLORIDE
     Dosage: AMOUNT NOT SPECIFIED
     Route: 048
     Dates: start: 20180520, end: 20180520
  4. SERTRALINE HCL [Suspect]
     Active Substance: SERTRALINE HYDROCHLORIDE
     Dosage: 750 MG (15 DF 50 MG)
     Route: 048
     Dates: start: 20180520, end: 20180520

REACTIONS (4)
  - Somnolence [Unknown]
  - Intentional overdose [Unknown]
  - Tachycardia [Unknown]
  - Intentional self-injury [Unknown]

NARRATIVE: CASE EVENT DATE: 20180520
